FAERS Safety Report 10758659 (Version 1)
Quarter: 2015Q1

REPORT INFORMATION
  Report Type: Spontaneous
  Country: GB (occurrence: GB)
  Receive Date: 20150203
  Receipt Date: 20150203
  Transmission Date: 20150721
  Serious: Yes (Other)
  Sender: FDA-Public Use
  Company Number: GB-ACTAVIS-2015-00976

PATIENT

DRUGS (14)
  1. COCODAMOL [Suspect]
     Active Substance: ACETAMINOPHEN\CODEINE PHOSPHATE
     Indication: BACK PAIN
     Dosage: 50 PACKETS EQUIVALENT TO 25 MG PARACETAMOL
     Route: 064
  2. THIOPENTAL [Concomitant]
     Active Substance: THIOPENTAL
     Indication: INDUCTION AND MAINTENANCE OF ANAESTHESIA
     Dosage: 500 MG, UNKNOWN
     Route: 064
  3. PARACETAMOL (UNKNOWN) [Suspect]
     Active Substance: ACETAMINOPHEN
     Indication: INDUCTION AND MAINTENANCE OF ANAESTHESIA
     Dosage: 1 G, UNKNOWN
     Route: 064
  4. MORPHINE [Concomitant]
     Active Substance: MORPHINE
     Indication: POSTOPERATIVE ANALGESIA
     Dosage: UNK
     Route: 042
  5. CO-AMOXICLAV                       /00756801/ [Concomitant]
     Active Substance: AMOXICILLIN\CLAVULANIC ACID
     Indication: PRODUCT USED FOR UNKNOWN INDICATION
     Dosage: 1.2 G, UNKNOWN
     Route: 064
  6. OXYTOCIN. [Concomitant]
     Active Substance: OXYTOCIN
     Indication: PRODUCT USED FOR UNKNOWN INDICATION
     Dosage: 5 IU, UNKNOWN,  FOLLOWED BY AN INFUSION OF 40 U OVER 4 H
     Route: 064
  7. ROCURONIUM [Concomitant]
     Active Substance: ROCURONIUM BROMIDE
     Indication: INDUCTION AND MAINTENANCE OF ANAESTHESIA
     Dosage: 40 MG, UNKNOWN
     Route: 064
  8. LEVOBUPIVACAINE [Concomitant]
     Active Substance: LEVOBUPIVACAINE
     Indication: POSTOPERATIVE ANALGESIA
     Dosage: UNK
     Route: 064
  9. SUXAMETHONIUM [Concomitant]
     Active Substance: SUCCINYLCHOLINE
     Indication: INDUCTION AND MAINTENANCE OF ANAESTHESIA
     Dosage: 10 MG, UNKNOWN
     Route: 064
  10. ALFENTANIL [Concomitant]
     Active Substance: ALFENTANIL
     Indication: INDUCTION AND MAINTENANCE OF ANAESTHESIA
     Dosage: 1 MG, UNKNOWN
     Route: 064
  11. PARACETAMOL (UNKNOWN) [Suspect]
     Active Substance: ACETAMINOPHEN
     Indication: POSTOPERATIVE ANALGESIA
     Dosage: 1 DF SINGLE
     Route: 065
  12. MORPHINE [Concomitant]
     Active Substance: MORPHINE
     Indication: INDUCTION AND MAINTENANCE OF ANAESTHESIA
     Dosage: 10 MG, UNKNOWN
     Route: 064
  13. ENOXAPARIN [Concomitant]
     Active Substance: ENOXAPARIN
     Indication: PULMONARY EMBOLISM
     Dosage: 80 MG, BID
     Route: 062
  14. BECLOMETASONE [Concomitant]
     Active Substance: BECLOMETHASONE DIPROPIONATE
     Indication: ASTHMA
     Dosage: UNK
     Route: 064

REACTIONS (6)
  - Foetal heart rate decreased [Recovered/Resolved]
  - Foetal hypokinesia [Unknown]
  - Alanine aminotransferase increased [Recovered/Resolved]
  - Blood bilirubin increased [Recovered/Resolved]
  - Foetal exposure during pregnancy [Recovered/Resolved]
  - Overdose [Recovered/Resolved]
